FAERS Safety Report 8316740-8 (Version None)
Quarter: 2012Q2

REPORT INFORMATION
  Report Type: 
  Country: None (occurrence: None)
  Receive Date: 20120425
  Receipt Date: 20120416
  Transmission Date: 20120825
  Serious: No
  Sender: FDA-Public Use
  Company Number: 2012SP020146

PATIENT
  Age: 20 Year
  Sex: Female

DRUGS (15)
  1. CLONOPIN [Concomitant]
  2. SAPHRIS [Suspect]
  3. WELLBUTRIN [Concomitant]
  4. VITAMIN B COMPLEX CAP [Concomitant]
  5. SAPHRIS [Suspect]
     Indication: ANXIETY
     Dosage: 5:15 MG, BID, QD, SL
     Route: 060
     Dates: start: 20120306
  6. SAPHRIS [Suspect]
     Indication: DEPRESSION
     Dosage: 5:15 MG, BID, QD, SL
     Route: 060
     Dates: start: 20120306
  7. SAPHRIS [Suspect]
     Indication: CRYING
     Dosage: 5:15 MG, BID, QD, SL
     Route: 060
     Dates: start: 20120306
  8. SAPHRIS [Suspect]
     Indication: ANXIETY
     Dosage: 5:15 MG, BID, QD, SL
     Route: 060
     Dates: end: 20120309
  9. SAPHRIS [Suspect]
     Indication: DEPRESSION
     Dosage: 5:15 MG, BID, QD, SL
     Route: 060
     Dates: end: 20120309
  10. SAPHRIS [Suspect]
     Indication: CRYING
     Dosage: 5:15 MG, BID, QD, SL
     Route: 060
     Dates: end: 20120309
  11. SAPHRIS [Suspect]
     Indication: ANXIETY
     Dosage: 5:15 MG, BID, QD, SL
     Route: 060
     Dates: start: 20120207
  12. SAPHRIS [Suspect]
     Indication: DEPRESSION
     Dosage: 5:15 MG, BID, QD, SL
     Route: 060
     Dates: start: 20120207
  13. SAPHRIS [Suspect]
     Indication: CRYING
     Dosage: 5:15 MG, BID, QD, SL
     Route: 060
     Dates: start: 20120207
  14. ORTHO TRI-CYCLEN [Concomitant]
  15. PRISTIQ [Concomitant]

REACTIONS (8)
  - OFF LABEL USE [None]
  - SWOLLEN TONGUE [None]
  - TONGUE ULCERATION [None]
  - GLOSSODYNIA [None]
  - MUSCLE TWITCHING [None]
  - TIC [None]
  - FACIAL PAIN [None]
  - SALIVARY HYPERSECRETION [None]
